FAERS Safety Report 18768555 (Version 1)
Quarter: 2021Q1

REPORT INFORMATION
  Report Type: Spontaneous
  Country: US (occurrence: US)
  Receive Date: 20210121
  Receipt Date: 20210121
  Transmission Date: 20210419
  Serious: No
  Sender: FDA-Public Use
  Company Number: None

PATIENT
  Age: 71 Year
  Sex: Male
  Weight: 90.72 kg

DRUGS (5)
  1. POTASSIUM CITRATE ER [Concomitant]
     Active Substance: POTASSIUM CITRATE
  2. LATANOPROST. [Concomitant]
     Active Substance: LATANOPROST
  3. SPRYCEL [Suspect]
     Active Substance: DASATINIB
     Indication: CHRONIC MYELOID LEUKAEMIA
     Route: 048
     Dates: start: 20210111, end: 20210121
  4. LEVOTHYROXINE SODIUM. [Concomitant]
     Active Substance: LEVOTHYROXINE SODIUM
  5. LUTEIN [Concomitant]
     Active Substance: LUTEIN

REACTIONS (4)
  - Diarrhoea [None]
  - Influenza like illness [None]
  - Headache [None]
  - Paraesthesia oral [None]

NARRATIVE: CASE EVENT DATE: 20210121
